FAERS Safety Report 9403794 (Version 1)
Quarter: 2013Q3

REPORT INFORMATION
  Report Type: Spontaneous
  Country: GR (occurrence: None)
  Receive Date: 20130712
  Receipt Date: 20130712
  Transmission Date: 20140515
  Serious: Yes (Other)
  Sender: FDA-Public Use
  Company Number: GR-1199157

PATIENT
  Age: 38 Year
  Sex: Female

DRUGS (2)
  1. MAXIDEX [Suspect]
     Indication: POSTOPERATIVE CARE
  2. OFLOXACIN [Suspect]
     Indication: POSTOPERATIVE CARE

REACTIONS (2)
  - Ulcerative keratitis [None]
  - Herpes virus infection [None]
